FAERS Safety Report 22368899 (Version 2)
Quarter: 2023Q2

REPORT INFORMATION
  Report Type: Spontaneous
  Country: LT (occurrence: LT)
  Receive Date: 20230525
  Receipt Date: 20230531
  Transmission Date: 20230721
  Serious: Yes (Hospitalization, Other)
  Sender: FDA-Public Use
  Company Number: LT-MLMSERVICE-20230515-4285922-1

PATIENT
  Age: 52 Year
  Sex: Male

DRUGS (2)
  1. SIROLIMUS [Suspect]
     Active Substance: SIROLIMUS
     Indication: Prophylaxis against transplant rejection
  2. PREDNISOLONE [Suspect]
     Active Substance: PREDNISOLONE
     Indication: Prophylaxis against transplant rejection

REACTIONS (4)
  - Postoperative wound infection [Recovered/Resolved]
  - Mediastinitis [Recovered/Resolved]
  - Escherichia infection [Recovered/Resolved]
  - Off label use [Unknown]
